FAERS Safety Report 5560955-9 (Version None)
Quarter: 2007Q4

REPORT INFORMATION
  Report Type: 
  Country: None (occurrence: None)
  Receive Date: 20071215
  Receipt Date: 20071129
  Transmission Date: 20080405
  Serious: No
  Sender: FDA-Public Use
  Company Number: US-ABBOTT-07P-163-0426784-00

PATIENT
  Sex: Female
  Weight: 91.254 kg

DRUGS (4)
  1. HUMIRA [Suspect]
     Indication: PSORIASIS
     Route: 058
     Dates: start: 20071103
  2. HUMIRA [Suspect]
     Indication: ARTHRITIS
  3. BLOOD PRESSURE MEDICINE [Concomitant]
     Indication: HYPERTENSION
     Route: 048
  4. INSULIN [Concomitant]
     Indication: DIABETES MELLITUS
     Route: 058

REACTIONS (2)
  - ARTHRALGIA [None]
  - JOINT SWELLING [None]
